FAERS Safety Report 18881878 (Version 2)
Quarter: 2021Q1

REPORT INFORMATION
  Report Type: Spontaneous
  Country: US (occurrence: US)
  Receive Date: 20210212
  Receipt Date: 20210215
  Transmission Date: 20210420
  Serious: Yes (Other)
  Sender: FDA-Public Use
  Company Number: US-CIPLA LTD.-2021US00875

PATIENT

DRUGS (6)
  1. RETROVIR [Suspect]
     Active Substance: ZIDOVUDINE
     Dosage: 2 MG/KG/HR (COURSE 1)
     Route: 064
     Dates: start: 20200605, end: 20200606
  2. RETROVIR [Suspect]
     Active Substance: ZIDOVUDINE
     Dosage: 1 MG/KG/HR (COURCE 2)
     Route: 064
     Dates: start: 20200605, end: 20200606
  3. TRIUMEQ [Suspect]
     Active Substance: ABACAVIR SULFATE\DOLUTEGRAVIR SODIUM\LAMIVUDINE
     Dosage: 1 DOSAGE FORM, QD (COURSE 1)
     Route: 064
     Dates: end: 20191114
  4. RITONAVIR. [Suspect]
     Active Substance: RITONAVIR
     Dosage: 1 DOSAGE FORM, QD (TAB/CAPS) (COURSE1)
     Route: 064
     Dates: start: 20191114
  5. ATAZANAVIR. [Suspect]
     Active Substance: ATAZANAVIR
     Dosage: 1 DOSAGE FORM, QD (TAB/CAP) (COURCE 1)
     Route: 064
     Dates: start: 20191114
  6. EMTRICITABINE/TENOFOVIR [Suspect]
     Active Substance: EMTRICITABINE\TENOFOVIR
     Dosage: 1 DOSAGE FORM, QD (TAB/CAPS) (COURSE 1)
     Route: 064
     Dates: start: 20191114

REACTIONS (2)
  - Low birth weight baby [Unknown]
  - Foetal exposure during pregnancy [Unknown]
